FAERS Safety Report 24144565 (Version 1)
Quarter: 2024Q3

REPORT INFORMATION
  Report Type: Spontaneous
  Country: US (occurrence: US)
  Receive Date: 20240728
  Receipt Date: 20240728
  Transmission Date: 20241016
  Serious: Yes (Hospitalization)
  Sender: HETERO
  Company Number: US-AMAROX PHARMA-HET2024US02292

PATIENT

DRUGS (1)
  1. LEVETIRACETAM [Suspect]
     Active Substance: LEVETIRACETAM
     Indication: Product used for unknown indication
     Dosage: UNK
     Route: 065

REACTIONS (3)
  - Seizure [Recovered/Resolved]
  - Therapeutic response changed [Unknown]
  - Product substitution issue [Unknown]
